FAERS Safety Report 8236708-X (Version None)
Quarter: 2012Q1

REPORT INFORMATION
  Report Type: 
  Country: None (occurrence: None)
  Receive Date: 20120323
  Receipt Date: 20120315
  Transmission Date: 20120608
  Serious: Yes (Other)
  Sender: FDA-Public Use
  Company Number: GER/UKI/11/0022384

PATIENT
  Age: 49 Year
  Sex: Female
  Weight: 60 kg

DRUGS (5)
  1. FLUOXETINE [Suspect]
     Indication: DEPRESSION
     Dates: start: 20110901
  2. FLUOXETINE [Suspect]
     Indication: ANXIETY
     Dates: start: 20110901
  3. TOLTERODINE TARTRATE [Suspect]
     Indication: IRRITABLE BOWEL SYNDROME
     Dosage: 4 MG, 1 IN 1 D, ORAL
     Route: 048
     Dates: start: 20111018, end: 20111019
  4. TOLTERODINE TARTRATE [Suspect]
     Indication: POLLAKIURIA
     Dosage: 4 MG, 1 IN 1 D, ORAL
     Route: 048
     Dates: start: 20111018, end: 20111019
  5. CLARITHROMYCIN [Suspect]
     Indication: LOWER RESPIRATORY TRACT INFECTION
     Dosage: 500 MG, 2 IN 1 D
     Dates: start: 20111018

REACTIONS (6)
  - EPILEPSY [None]
  - POLLAKIURIA [None]
  - CONVULSIVE THRESHOLD LOWERED [None]
  - DRUG LEVEL INCREASED [None]
  - DRUG INTERACTION [None]
  - ROAD TRAFFIC ACCIDENT [None]
